FAERS Safety Report 15758596 (Version 1)
Quarter: 2018Q4

REPORT INFORMATION
  Report Type: Spontaneous
  Country: CN (occurrence: CN)
  Receive Date: 20181225
  Receipt Date: 20181225
  Transmission Date: 20190205
  Serious: Yes (Other)
  Sender: FDA-Public Use
  Company Number: PHHY2018CN193897

PATIENT
  Age: 51 Year
  Sex: Female

DRUGS (2)
  1. CARBAMAZEPINE. [Suspect]
     Active Substance: CARBAMAZEPINE
     Indication: STATUS EPILEPTICUS
     Dosage: 0.2 G, BID
     Route: 045
  2. CEFOPERAZONE + SULBACTAM [Concomitant]
     Active Substance: CEFOPERAZONE SODIUM\SULBACTAM
     Indication: LUNG INFECTION
     Dosage: 3 G, Q8H
     Route: 042

REACTIONS (8)
  - Skin exfoliation [Recovering/Resolving]
  - Oedema peripheral [Recovering/Resolving]
  - Dermatitis exfoliative [Recovering/Resolving]
  - Blister [Recovering/Resolving]
  - Swelling [Recovering/Resolving]
  - Incorrect route of product administration [Unknown]
  - Pyrexia [Recovering/Resolving]
  - Erythema [Recovering/Resolving]
